FAERS Safety Report 9327978 (Version 1)
Quarter: 2013Q2

REPORT INFORMATION
  Report Type: Spontaneous
  Country: US (occurrence: US)
  Receive Date: 20130604
  Receipt Date: 20130604
  Transmission Date: 20140414
  Serious: No
  Sender: FDA-Public Use
  Company Number: US-009507513-1305USA003436

PATIENT
  Age: 87 Year
  Sex: Male
  Weight: 81.63 kg

DRUGS (6)
  1. CLARITIN [Suspect]
     Indication: URTICARIA
     Dosage: 10 MG, QD
     Route: 048
     Dates: start: 20130419, end: 20130424
  2. CLARITIN [Suspect]
     Indication: MEDICAL OBSERVATION
  3. CHOLECALCIFEROL [Concomitant]
     Indication: HYPOVITAMINOSIS
     Dosage: UNK, UNKNOWN
  4. TRANDOLAPRIL [Concomitant]
     Indication: HYPERTENSION
     Dosage: UNK, UNKNOWN
  5. SIMVASTATIN [Concomitant]
     Indication: BLOOD CHOLESTEROL INCREASED
     Dosage: UNK, UNKNOWN
  6. SYNTHROID [Concomitant]
     Indication: THYROIDECTOMY
     Dosage: UNK, UNKNOWN

REACTIONS (3)
  - Therapeutic response unexpected [Unknown]
  - Off label use [Unknown]
  - Product quality issue [Unknown]
